FAERS Safety Report 9697508 (Version 1)
Quarter: 2013Q4

REPORT INFORMATION
  Report Type: Spontaneous
  Country: US (occurrence: None)
  Receive Date: 20131119
  Receipt Date: 20131119
  Transmission Date: 20140711
  Serious: No
  Sender: FDA-Public Use
  Company Number: None

PATIENT
  Age: 78 Year
  Sex: Male
  Weight: 64.41 kg

DRUGS (14)
  1. RAPAFLO [Suspect]
     Dosage: 1 CAPSULE ORALLY PER DAY ONCE DAILY WITH MEAL
     Route: 048
     Dates: start: 20131102, end: 20131103
  2. ENDOCET [Concomitant]
  3. GLEEVEC [Concomitant]
  4. RANITIDINE [Concomitant]
  5. ALPRAZOLAM [Concomitant]
  6. ODANSETRON [Concomitant]
  7. MEDIZINE [Concomitant]
  8. LUPRON INJECTION [Concomitant]
  9. MELATONIN [Concomitant]
  10. OCTOVITE [Concomitant]
  11. CITRACAL [Concomitant]
  12. D3 [Concomitant]
  13. B 12 [Concomitant]
  14. AFRIN NASAL SPRAY [Concomitant]

REACTIONS (1)
  - No adverse event [None]
